FAERS Safety Report 9401517 (Version 2)
Quarter: 2013Q3

REPORT INFORMATION
  Report Type: Spontaneous
  Country: NL (occurrence: NL)
  Receive Date: 20130716
  Receipt Date: 20130902
  Transmission Date: 20140515
  Serious: Yes (Other)
  Sender: FDA-Public Use
  Company Number: NL-AMGEN-NLDSP2013049199

PATIENT
  Age: 64 Year
  Sex: Male

DRUGS (3)
  1. ENBREL [Suspect]
     Indication: ANKYLOSING SPONDYLITIS
     Dosage: 25 MG, 1X/5DAYS
     Route: 065
     Dates: start: 2009, end: 201306
  2. VERAPAMIL [Concomitant]
     Dosage: UNK
  3. PARACETAMOL [Concomitant]
     Dosage: UNK

REACTIONS (1)
  - Prostate cancer [Not Recovered/Not Resolved]
